FAERS Safety Report 7501599-9 (Version None)
Quarter: 2011Q2

REPORT INFORMATION
  Report Type: 
  Country: None (occurrence: None)
  Receive Date: 20110524
  Receipt Date: 20110518
  Transmission Date: 20111010
  Serious: Yes (Hospitalization, Disabling)
  Sender: FDA-Public Use
  Company Number: US-MERCK-1104USA03484

PATIENT
  Age: 73 Year
  Sex: Female

DRUGS (9)
  1. PREMARIN [Concomitant]
     Route: 048
  2. [THERAPY UNSPECIFIED] [Concomitant]
     Route: 048
  3. VITAMIN E [Concomitant]
     Route: 048
     Dates: start: 19850101
  4. BIOTIN [Concomitant]
     Route: 048
  5. CALTRATE + IRON AND VITAMIN D [Concomitant]
     Route: 048
     Dates: start: 19850101
  6. ALOE VERA AND APPLE AND BILLBERRY AND BLUEBERRY AND CRANBERRY AND GENT [Concomitant]
     Route: 048
     Dates: start: 19850101
  7. FOSAMAX [Suspect]
     Indication: OSTEOPOROSIS
     Route: 048
     Dates: start: 20020901, end: 20070701
  8. ACTONEL [Concomitant]
     Route: 048
  9. CALCIUM (UNSPECIFIED) [Concomitant]
     Route: 048

REACTIONS (14)
  - INFLAMMATION [None]
  - INTERVERTEBRAL DISC PROTRUSION [None]
  - SACROILIITIS [None]
  - BURNING SENSATION [None]
  - BACK PAIN [None]
  - SPONDYLOLISTHESIS [None]
  - DISABILITY [None]
  - SKIN BURNING SENSATION [None]
  - HYPERTENSION [None]
  - FEMUR FRACTURE [None]
  - LUMBAR SPINAL STENOSIS [None]
  - PAIN IN EXTREMITY [None]
  - OSTEOARTHRITIS [None]
  - FALL [None]
